FAERS Safety Report 4299919-4 (Version None)
Quarter: 2004Q1

REPORT INFORMATION
  Report Type: 
  Country: None (occurrence: None)
  Receive Date: 20040220
  Receipt Date: 20040213
  Transmission Date: 20041129
  Serious: Yes (Hospitalization)
  Sender: FDA-Public Use
  Company Number: 200410460EU

PATIENT
  Age: 64 Year
  Sex: 0

DRUGS (5)
  1. DOCETAXEL [Suspect]
     Indication: OESOPHAGEAL CARCINOMA
     Route: 042
     Dates: start: 20040105, end: 20040202
  2. CISPLATIN [Suspect]
     Indication: OESOPHAGEAL CARCINOMA
     Route: 042
     Dates: start: 20040105, end: 20040202
  3. RADIOTHERAPY [Concomitant]
     Indication: OESOPHAGEAL CARCINOMA
     Dates: start: 20040105, end: 20040209
  4. NEXIUM [Concomitant]
     Route: 048
     Dates: start: 20040209
  5. CONCOR PLUS [Concomitant]
     Route: 048
     Dates: start: 20040209

REACTIONS (1)
  - DYSPHAGIA [None]
